FAERS Safety Report 7446605-5 (Version None)
Quarter: 2011Q2

REPORT INFORMATION
  Report Type: 
  Country: None (occurrence: None)
  Receive Date: 20110429
  Receipt Date: 20110420
  Transmission Date: 20111010
  Serious: Yes (Hospitalization, Other)
  Sender: FDA-Public Use
  Company Number: PHHY2011TW33264

PATIENT
  Age: 53 Year
  Sex: Male

DRUGS (4)
  1. VANCOMYCIN [Concomitant]
     Dosage: UNK UKN, UNK
  2. METRONIDAZOLE [Suspect]
     Dosage: 500 MG, Q8H
  3. METRONIDAZOLE [Suspect]
     Dosage: 500 MG, Q6H
  4. CEFTRIAXONE [Concomitant]
     Dosage: UNK UKN, UNK

REACTIONS (24)
  - BRAIN ABSCESS [None]
  - ALTERED STATE OF CONSCIOUSNESS [None]
  - COGNITIVE DISORDER [None]
  - ATAXIA [None]
  - HYPOAESTHESIA [None]
  - NEUROTOXICITY [None]
  - NYSTAGMUS [None]
  - DYSARTHRIA [None]
  - LIMB DISCOMFORT [None]
  - DIZZINESS [None]
  - MUSCULAR WEAKNESS [None]
  - ALLODYNIA [None]
  - SENSORY LOSS [None]
  - MOTOR DYSFUNCTION [None]
  - CENTRAL NERVOUS SYSTEM LESION [None]
  - NERVE DEGENERATION [None]
  - HYPOREFLEXIA [None]
  - POLYNEUROPATHY [None]
  - HEMIPARESIS [None]
  - GAZE PALSY [None]
  - PARAESTHESIA [None]
  - BONE MARROW FAILURE [None]
  - PEPTOSTREPTOCOCCUS TEST POSITIVE [None]
  - DRUG RESISTANCE [None]
